FAERS Safety Report 21708818 (Version 1)
Quarter: 2022Q4

REPORT INFORMATION
  Report Type: Report from Study
  Country: US (occurrence: US)
  Receive Date: 20221210
  Receipt Date: 20221210
  Transmission Date: 20230113
  Serious: Yes (Hospitalization)
  Sender: FDA-Public Use
  Company Number: US-ABBVIE-4230228

PATIENT
  Sex: Male

DRUGS (2)
  1. IMBRUVICA [Suspect]
     Active Substance: IBRUTINIB
     Indication: Chronic lymphocytic leukaemia
     Dosage: ALL EVENTS WERE STARTED IN 2022?DISCONTINUED IN 2022
     Route: 048
     Dates: start: 202208
  2. IMBRUVICA [Suspect]
     Active Substance: IBRUTINIB
     Indication: Chronic lymphocytic leukaemia
     Dosage: STARTED IN 2022
     Route: 048

REACTIONS (5)
  - Colitis [Unknown]
  - Insomnia [Unknown]
  - Frustration tolerance decreased [Unknown]
  - Dyspnoea exertional [Unknown]
  - Fatigue [Unknown]
